FAERS Safety Report 7289619-0 (Version None)
Quarter: 2011Q1

REPORT INFORMATION
  Report Type: 
  Country: None (occurrence: None)
  Receive Date: 20110214
  Receipt Date: 20110202
  Transmission Date: 20110831
  Serious: Yes (Hospitalization)
  Sender: FDA-Public Use
  Company Number: US-BIOGENIDEC-2010BI026406

PATIENT
  Age: 41 Year
  Sex: Female

DRUGS (4)
  1. CARBAMAZEPINE [Concomitant]
  2. WELLBUTRIN [Concomitant]
  3. TYSABRI [Suspect]
     Indication: MULTIPLE SCLEROSIS
     Route: 042
     Dates: start: 20080418, end: 20100709
  4. PRENATAL VITAMINS [Concomitant]

REACTIONS (2)
  - PREGNANCY [None]
  - SHORTENED CERVIX [None]
